FAERS Safety Report 13721311 (Version 1)
Quarter: 2017Q3

REPORT INFORMATION
  Report Type: Spontaneous
  Country: US (occurrence: US)
  Receive Date: 20170706
  Receipt Date: 20170706
  Transmission Date: 20171127
  Serious: Yes (Death, Life-Threatening, Other)
  Sender: FDA-Public Use
  Company Number: US-WEST-WARD PHARMACEUTICALS CORP.-US-H14001-17-02235

PATIENT
  Age: 39 Year
  Sex: Male

DRUGS (1)
  1. LIDOCAINE. [Suspect]
     Active Substance: LIDOCAINE
     Indication: PAIN
     Route: 045

REACTIONS (6)
  - Hemiparesis [Unknown]
  - Aphasia [Unknown]
  - Embolism [Unknown]
  - Acute respiratory failure [Fatal]
  - Brain stem syndrome [Fatal]
  - Cerebrovascular accident [Fatal]
